FAERS Safety Report 6317901-X (Version None)
Quarter: 2009Q3

REPORT INFORMATION
  Report Type: 
  Country: None (occurrence: None)
  Receive Date: 20090820
  Receipt Date: 20090820
  Transmission Date: 20100115
  Serious: Yes (Other)
  Sender: FDA-Public Use
  Company Number: None

PATIENT
  Sex: Male

DRUGS (2)
  1. ABILIFY [Suspect]
     Indication: ANXIETY
     Dosage: 5 MG DAILY PO
     Route: 048
  2. ABILIFY [Suspect]
     Indication: MAJOR DEPRESSION
     Dosage: 5 MG DAILY PO
     Route: 048

REACTIONS (4)
  - DYSKINESIA [None]
  - DYSPNOEA [None]
  - ERUCTATION [None]
  - WRONG TECHNIQUE IN DRUG USAGE PROCESS [None]
